FAERS Safety Report 6342243-6 (Version None)
Quarter: 2009Q3

REPORT INFORMATION
  Report Type: 
  Country: None (occurrence: None)
  Receive Date: 20090903
  Receipt Date: 20090903
  Transmission Date: 20100115
  Serious: Yes (Hospitalization)
  Sender: FDA-Public Use
  Company Number: None

PATIENT
  Sex: Female
  Weight: 82.9 kg

DRUGS (3)
  1. CARBOPLATIN [Suspect]
     Dosage: 1374 MG
  2. ERBITUX [Suspect]
     Dosage: 3970 MG
  3. TAXOL [Suspect]
     Dosage: 965.8 MG

REACTIONS (8)
  - CHEST PAIN [None]
  - DYSPHAGIA [None]
  - DYSPNOEA [None]
  - HYPERHIDROSIS [None]
  - MUSCLE SPASMS [None]
  - MYOCARDIAL ISCHAEMIA [None]
  - NO THERAPEUTIC RESPONSE [None]
  - SINUS TACHYCARDIA [None]
